FAERS Safety Report 6712159-1 (Version None)
Quarter: 2010Q2

REPORT INFORMATION
  Report Type: 
  Country: None (occurrence: None)
  Receive Date: 20100505
  Receipt Date: 20100423
  Transmission Date: 20101027
  Serious: No
  Sender: FDA-Public Use
  Company Number: US-ROXANE LABORATORIES, INC.-2010-RO-00474RO

PATIENT
  Sex: Male

DRUGS (3)
  1. FLUTICASONE PROPIONATE [Suspect]
     Route: 045
     Dates: start: 20060101
  2. FLUTICASONE PROPIONATE [Suspect]
     Route: 045
     Dates: start: 20100101
  3. FLUTICASONE PROPIONATE [Suspect]
     Route: 045
     Dates: start: 20100101

REACTIONS (2)
  - INFLUENZA [None]
  - NASAL CONGESTION [None]
